FAERS Safety Report 15821521 (Version 3)
Quarter: 2020Q2

REPORT INFORMATION
  Report Type: Spontaneous
  Country: US (occurrence: US)
  Receive Date: 20190114
  Receipt Date: 20200513
  Transmission Date: 20200713
  Serious: No
  Sender: FDA-Public Use
  Company Number: US-PFIZER INC-2019014535

PATIENT
  Age: 50 Year
  Sex: Male
  Weight: 141.52 kg

DRUGS (3)
  1. GENOTROPIN MQ [Suspect]
     Active Substance: SOMATROPIN
     Indication: VITAMIN D DEFICIENCY
     Dosage: 0.8 MG, DAILY
  2. GENOTROPIN MQ [Suspect]
     Active Substance: SOMATROPIN
     Indication: BLOOD GROWTH HORMONE
  3. GENOTROPIN MQ [Suspect]
     Active Substance: SOMATROPIN
     Indication: TESTICULAR DISORDER

REACTIONS (5)
  - Weight increased [Unknown]
  - Product use in unapproved indication [Unknown]
  - Insulin-like growth factor decreased [Unknown]
  - Bone density decreased [Unknown]
  - Off label use [Unknown]
